FAERS Safety Report 16790640 (Version 1)
Quarter: 2019Q3

REPORT INFORMATION
  Report Type: Spontaneous
  Country: US (occurrence: US)
  Receive Date: 20190910
  Receipt Date: 20190910
  Transmission Date: 20191005
  Serious: Yes (Other)
  Sender: FDA-Public Use
  Company Number: US-PFIZER INC-2019385520

PATIENT
  Age: 73 Year
  Sex: Female

DRUGS (1)
  1. LYRICA [Suspect]
     Active Substance: PREGABALIN
     Dosage: 25 MG, TWICE A DAY
     Route: 048

REACTIONS (2)
  - Ovarian cancer metastatic [Not Recovered/Not Resolved]
  - Adnexa uteri pain [Not Recovered/Not Resolved]
